FAERS Safety Report 5161372-6 (Version None)
Quarter: 2006Q4

REPORT INFORMATION
  Report Type: 
  Country: None (occurrence: None)
  Receive Date: 20061130
  Receipt Date: 20060831
  Transmission Date: 20070319
  Serious: Yes (Other)
  Sender: FDA-Public Use
  Company Number: US-GLAXOSMITHKLINE-A0618789A

PATIENT
  Sex: Male

DRUGS (1)
  1. ARRANON [Suspect]
     Route: 042
     Dates: start: 20060101

REACTIONS (1)
  - NEUROTOXICITY [None]
